FAERS Safety Report 9380956 (Version 5)
Quarter: 2014Q1

REPORT INFORMATION
  Report Type: Spontaneous
  Country: US (occurrence: US)
  Receive Date: 20130703
  Receipt Date: 20140113
  Transmission Date: 20141002
  Serious: Yes (Other)
  Sender: FDA-Public Use
  Company Number: US-ROCHE-1220255

PATIENT
  Age: 57 Year
  Sex: Male

DRUGS (8)
  1. PEGASYS [Suspect]
     Indication: CHRONIC HEPATITIS C
     Route: 058
     Dates: start: 20130210
  2. PEGASYS [Suspect]
     Route: 058
  3. PEGASYS [Suspect]
     Route: 058
     Dates: start: 20130523, end: 20131208
  4. COPEGUS [Suspect]
     Indication: CHRONIC HEPATITIS C
     Dosage: DAILY DIVIDED DOSES 600/400
     Route: 065
     Dates: start: 20130210
  5. COPEGUS [Suspect]
     Dosage: DIVIDED DOSE(400/400)
     Route: 065
  6. COPEGUS [Suspect]
     Dosage: 2 PILLS IN THE MORNING ONLY
     Route: 048
  7. COPEGUS [Suspect]
     Dosage: 4 PILLS ARE TAKEN IN THE MORNING.
     Route: 048
     Dates: end: 20131208
  8. INCIVEK [Suspect]
     Indication: CHRONIC HEPATITIS C
     Route: 065
     Dates: start: 20130210, end: 20130505

REACTIONS (13)
  - Anaemia [Recovered/Resolved]
  - Arthralgia [Unknown]
  - Oedema peripheral [Unknown]
  - Arthralgia [Unknown]
  - Rash generalised [Unknown]
  - Pruritus [Unknown]
  - Platelet count decreased [Unknown]
  - White blood cell count decreased [Unknown]
  - Pruritus [Unknown]
  - Pain in extremity [Unknown]
  - Insomnia [Unknown]
  - Rash [Unknown]
  - Local swelling [Unknown]
